FAERS Safety Report 12660560 (Version 1)
Quarter: 2016Q3

REPORT INFORMATION
  Report Type: Spontaneous
  Country: US (occurrence: US)
  Receive Date: 20160817
  Receipt Date: 20160817
  Transmission Date: 20161109
  Serious: Yes (Other)
  Sender: FDA-Public Use
  Company Number: US-PROCTER_AND_GAMBLE-GS16099246

PATIENT
  Sex: Male

DRUGS (2)
  1. ALCOHOL. [Concomitant]
     Active Substance: ALCOHOL
  2. ZZZQUIL NIGHTTIME SLEEP-AID [Suspect]
     Active Substance: DIPHENHYDRAMINE HYDROCHLORIDE
     Dosage: 3 LIQCAP, 1 ONLY
     Route: 048

REACTIONS (4)
  - Overdose [Unknown]
  - Alcohol use [None]
  - Product use issue [Unknown]
  - Depressed level of consciousness [Not Recovered/Not Resolved]

NARRATIVE: CASE EVENT DATE: 20160807
